FAERS Safety Report 9583012 (Version 1)
Quarter: 2013Q4

REPORT INFORMATION
  Report Type: Spontaneous
  Country: US (occurrence: US)
  Receive Date: 20131002
  Receipt Date: 20131002
  Transmission Date: 20140711
  Serious: No
  Sender: FDA-Public Use
  Company Number: US-AMGEN-USASP2013044431

PATIENT
  Age: 58 Year
  Sex: Female

DRUGS (2)
  1. ENBREL [Suspect]
     Indication: PSORIATIC ARTHROPATHY
     Dosage: 50 MG, QWK
     Route: 065
     Dates: start: 20130410
  2. METHOTREXATE [Concomitant]
     Dosage: UNK

REACTIONS (15)
  - Heart rate irregular [Not Recovered/Not Resolved]
  - Blood pressure abnormal [Not Recovered/Not Resolved]
  - Irritable bowel syndrome [Not Recovered/Not Resolved]
  - Blood creatinine increased [Not Recovered/Not Resolved]
  - Arthralgia [Recovered/Resolved]
  - Pain [Not Recovered/Not Resolved]
  - Finger deformity [Not Recovered/Not Resolved]
  - Myalgia [Not Recovered/Not Resolved]
  - Hypoaesthesia [Not Recovered/Not Resolved]
  - Fatigue [Not Recovered/Not Resolved]
  - Fibromyalgia [Recovered/Resolved]
  - Mouth ulceration [Recovered/Resolved]
  - Oropharyngeal pain [Recovered/Resolved]
  - Injection site bruising [Not Recovered/Not Resolved]
  - Lymphadenopathy [Recovered/Resolved]
